FAERS Safety Report 4791254-0 (Version None)
Quarter: 2005Q4

REPORT INFORMATION
  Report Type: 
  Country: None (occurrence: None)
  Receive Date: 20051007
  Receipt Date: 20050609
  Transmission Date: 20060501
  Serious: Yes (Hospitalization)
  Sender: FDA-Public Use
  Company Number: 200511953FR

PATIENT
  Age: 62 Year
  Sex: Male

DRUGS (25)
  1. TARGOCID [Suspect]
     Route: 042
     Dates: start: 20050511, end: 20050523
  2. CLAFORAN [Suspect]
     Route: 042
     Dates: start: 20050511, end: 20050519
  3. LASILIX [Suspect]
     Route: 042
     Dates: start: 20050518, end: 20050521
  4. AUGMENTIN [Suspect]
     Route: 042
     Dates: start: 20050518, end: 20050521
  5. COVERSYL [Suspect]
     Dates: start: 20050507, end: 20050527
  6. SOLU-MEDROL [Concomitant]
     Route: 048
  7. DILTIAZEM HYDROCHLORIDE [Concomitant]
     Route: 048
  8. KARDEGIC [Concomitant]
     Route: 048
  9. FUROSEMIDE [Concomitant]
  10. FLAGYL [Concomitant]
     Dates: start: 20050511, end: 20050519
  11. PLAVIX [Concomitant]
     Dates: start: 20050507, end: 20050529
  12. NEURONTIN [Concomitant]
     Route: 048
  13. SURBRONC [Concomitant]
  14. IKOREL [Concomitant]
     Route: 048
  15. COZAAR [Concomitant]
     Route: 048
  16. COMBIVENT [Concomitant]
  17. SERETIDE [Concomitant]
     Route: 048
  18. ZOCOR [Concomitant]
     Route: 048
  19. ART 50 [Concomitant]
  20. AMPECYCLAL [Concomitant]
  21. AMODEX [Concomitant]
  22. ACTRAPID [Concomitant]
     Dates: start: 20050507
  23. MIXTARD HUMAN 70/30 [Concomitant]
     Dates: start: 20050507
  24. HEPARIN [Concomitant]
     Dates: start: 20050519
  25. CALCIPARINE [Concomitant]
     Dates: start: 20050519

REACTIONS (1)
  - PUSTULAR PSORIASIS [None]
